FAERS Safety Report 14485594 (Version 1)
Quarter: 2018Q1

REPORT INFORMATION
  Report Type: Spontaneous
  Country: US (occurrence: US)
  Receive Date: 20180202
  Receipt Date: 20180202
  Transmission Date: 20180509
  Serious: No
  Sender: FDA-Public Use
  Company Number: None

PATIENT
  Age: 66 Year
  Sex: Female

DRUGS (1)
  1. GLEEVEC [Suspect]
     Active Substance: IMATINIB MESYLATE
     Route: 048

REACTIONS (5)
  - Malaise [None]
  - Fatigue [None]
  - Chromaturia [None]
  - Hyperhidrosis [None]
  - Somnolence [None]

NARRATIVE: CASE EVENT DATE: 20171228
